FAERS Safety Report 18082722 (Version 1)
Quarter: 2020Q3

REPORT INFORMATION
  Report Type: Spontaneous
  Country: US (occurrence: US)
  Receive Date: 20200729
  Receipt Date: 20200729
  Transmission Date: 20201103
  Serious: No
  Sender: FDA-Public Use
  Company Number: US-ELI_LILLY_AND_COMPANY-US202007009799

PATIENT
  Sex: Female

DRUGS (5)
  1. HUMALOG [Suspect]
     Active Substance: INSULIN LISPRO
     Indication: DIABETES MELLITUS
     Dosage: 8 U, TID(3?8 UNITS)
     Route: 058
     Dates: start: 20200501
  2. LANTUS [Concomitant]
     Active Substance: INSULIN GLARGINE
     Indication: DIABETES MELLITUS
     Dosage: 24 U, DAILY(AT NIGHT)
     Route: 065
  3. HUMALOG [Suspect]
     Active Substance: INSULIN LISPRO
     Indication: DIABETES MELLITUS
     Dosage: 8 U, TID(3?8 UNITS)
     Route: 058
     Dates: start: 20200501
  4. HUMALOG [Suspect]
     Active Substance: INSULIN LISPRO
     Dosage: 8 U, TID(3?8 UNITS)
     Route: 058
     Dates: start: 20200501
  5. HUMALOG [Suspect]
     Active Substance: INSULIN LISPRO
     Dosage: 8 U, TID(3?8 UNITS)
     Route: 058
     Dates: start: 20200501

REACTIONS (1)
  - Injury associated with device [Unknown]
